FAERS Safety Report 17650339 (Version 1)
Quarter: 2020Q2

REPORT INFORMATION
  Report Type: Spontaneous
  Country: DE (occurrence: DE)
  Receive Date: 20200409
  Receipt Date: 20200409
  Transmission Date: 20200713
  Serious: Yes (Other)
  Sender: FDA-Public Use
  Company Number: DE-PFIZER INC-2020145045

PATIENT
  Age: 1 Day
  Sex: Male
  Weight: 2.69 kg

DRUGS (1)
  1. VENLAFAXINE HCL [Suspect]
     Active Substance: VENLAFAXINE HYDROCHLORIDE
     Indication: PANIC DISORDER
     Dosage: 300 MG, DAILY, 0. - 37. GESTATIONAL WEEK
     Route: 064
     Dates: start: 20190110, end: 20190926

REACTIONS (6)
  - Hypertonia neonatal [Recovered/Resolved]
  - Opisthotonus [Recovered/Resolved]
  - Neonatal respiratory distress syndrome [Recovered/Resolved]
  - Selective eating disorder [Recovered/Resolved]
  - Anal stenosis [Unknown]
  - Maternal exposure during pregnancy [Unknown]

NARRATIVE: CASE EVENT DATE: 20190926
